FAERS Safety Report 7610405-3 (Version None)
Quarter: 2011Q3

REPORT INFORMATION
  Report Type: 
  Country: None (occurrence: None)
  Receive Date: 20110715
  Receipt Date: 20110708
  Transmission Date: 20111222
  Serious: No
  Sender: FDA-Public Use
  Company Number: US-PFIZER INC-2011155815

PATIENT
  Sex: Male
  Weight: 66.667 kg

DRUGS (2)
  1. GENOTROPIN [Suspect]
     Dosage: 2.8 MG, 1X/DAY
     Route: 058
     Dates: start: 20110623
  2. TYLENOL-500 [Concomitant]

REACTIONS (1)
  - HEADACHE [None]
